FAERS Safety Report 21076592 (Version 1)
Quarter: 2022Q3

REPORT INFORMATION
  Report Type: Spontaneous
  Country: CA (occurrence: CA)
  Receive Date: 20220713
  Receipt Date: 20220713
  Transmission Date: 20221026
  Serious: No
  Sender: FDA-Public Use
  Company Number: CA-PFIZER INC-202200943570

PATIENT
  Age: 81 Year
  Sex: Female

DRUGS (1)
  1. PAXLOVID [Suspect]
     Active Substance: NIRMATRELVIR\RITONAVIR
     Indication: COVID-19 treatment
     Dosage: 4 DF; SHE TOOK 4 PILLS (2 OF EACH)

REACTIONS (1)
  - Extra dose administered [Unknown]

NARRATIVE: CASE EVENT DATE: 20220707
